FAERS Safety Report 6217235-8 (Version None)
Quarter: 2009Q2

REPORT INFORMATION
  Report Type: 
  Country: None (occurrence: None)
  Receive Date: 20090608
  Receipt Date: 20090528
  Transmission Date: 20091009
  Serious: Yes (Death)
  Sender: FDA-Public Use
  Company Number: CO-PFIZER INC-2009221487

PATIENT
  Age: 75 Year

DRUGS (1)
  1. LIPITOR [Suspect]
     Indication: ARTERIOSCLEROSIS
     Route: 048

REACTIONS (3)
  - EMPHYSEMA [None]
  - LUNG NEOPLASM MALIGNANT [None]
  - MALIGNANT NEOPLASM PROGRESSION [None]
